FAERS Safety Report 8772607 (Version 2)
Quarter: 2013Q1

REPORT INFORMATION
  Report Type: Spontaneous
  Country: US (occurrence: US)
  Receive Date: 20120905
  Receipt Date: 20130111
  Transmission Date: 20140127
  Serious: Yes (Hospitalization)
  Sender: FDA-Public Use
  Company Number: US-BAYER-2012-090948

PATIENT
  Age: 39 Year
  Sex: Female

DRUGS (5)
  1. YAZ [Suspect]
  2. ALBUTEROL [Concomitant]
     Dosage: PRN
     Route: 045
  3. LEVAQUIN [Concomitant]
  4. Z-PAK [Concomitant]
  5. YASMIN [Suspect]

REACTIONS (3)
  - Deep vein thrombosis [Recovered/Resolved]
  - Pulmonary embolism [None]
  - Pelvic venous thrombosis [Recovered/Resolved]
